FAERS Safety Report 6779408-5 (Version None)
Quarter: 2010Q2

REPORT INFORMATION
  Report Type: 
  Country: None (occurrence: None)
  Receive Date: 20100618
  Receipt Date: 20100616
  Transmission Date: 20101027
  Serious: Yes (Life-Threatening)
  Sender: FDA-Public Use
  Company Number: PHHY2010JP39497

PATIENT
  Age: 81 Year
  Sex: Female

DRUGS (4)
  1. TEGRETOL [Suspect]
     Indication: CENTRAL PAIN SYNDROME
     Dosage: UNK,UNIK
     Route: 048
  2. PLETAL [Suspect]
     Dosage: UNK,UNK
     Route: 048
  3. TICLOPIDINE HCL [Suspect]
     Dosage: UNK,UNK
     Route: 048
  4. SALOBEL [Suspect]
     Dosage: UNK,UNK
     Route: 048

REACTIONS (1)
  - INTERSTITIAL LUNG DISEASE [None]
